FAERS Safety Report 9548761 (Version 1)
Quarter: 2013Q3

REPORT INFORMATION
  Report Type: Spontaneous
  Country: JP (occurrence: None)
  Receive Date: 20130919
  Receipt Date: 20130919
  Transmission Date: 20140515
  Serious: No
  Sender: FDA-Public Use
  Company Number: TCI2013A04884

PATIENT
  Age: 46 Year
  Sex: Female

DRUGS (3)
  1. TAKEPRON [Suspect]
     Route: 048
     Dates: start: 201106, end: 201106
  2. CLARITH [Suspect]
     Route: 048
     Dates: start: 201106, end: 201106
  3. SAWACILLIN [Suspect]
     Route: 048

REACTIONS (1)
  - Erythema multiforme [None]
